FAERS Safety Report 16444261 (Version 1)
Quarter: 2019Q2

REPORT INFORMATION
  Report Type: Report from Study
  Country: None (occurrence: BR)
  Receive Date: 20190618
  Receipt Date: 20190618
  Transmission Date: 20190711
  Serious: Yes (Hospitalization, Other)
  Sender: FDA-Public Use
  Company Number: BR-ABBVIE-19K-020-2820294-00

PATIENT
  Sex: Female

DRUGS (1)
  1. HUMIRA [Suspect]
     Active Substance: ADALIMUMAB
     Indication: RHEUMATOID ARTHRITIS
     Route: 058
     Dates: start: 20190102, end: 201903

REACTIONS (11)
  - Taste disorder [Unknown]
  - Gastrointestinal neoplasm [Unknown]
  - Deafness [Unknown]
  - Fatigue [Unknown]
  - Muscle spasms [Unknown]
  - Immunodeficiency [Unknown]
  - Anaemia [Unknown]
  - Malaise [Unknown]
  - Stomatitis [Unknown]
  - Mouth swelling [Unknown]
  - Syncope [Unknown]

NARRATIVE: CASE EVENT DATE: 2019
